FAERS Safety Report 4277387-6 (Version None)
Quarter: 2004Q1

REPORT INFORMATION
  Report Type: 
  Country: None (occurrence: None)
  Receive Date: 20040122
  Receipt Date: 20020311
  Transmission Date: 20041129
  Serious: Yes (Death, Hospitalization)
  Sender: FDA-Public Use
  Company Number: 200212523US

PATIENT
  Sex: Female

DRUGS (7)
  1. ARAVA [Suspect]
     Indication: RHEUMATOID ARTHRITIS
     Route: 048
     Dates: start: 20011004
  2. METHOTREXATE [Concomitant]
     Dosage: DOSE: UNK
     Dates: end: 20010921
  3. PLAQUENIL [Concomitant]
     Dosage: DOSE: UNK
  4. TYLENOL [Concomitant]
     Indication: ARTHRALGIA
  5. FOSAMAX [Concomitant]
  6. CALTRATE + D [Concomitant]
  7. BENADRYL [Concomitant]

REACTIONS (18)
  - ABDOMINAL PAIN UPPER [None]
  - ACUTE MYELOID LEUKAEMIA [None]
  - ANAEMIA [None]
  - BONE MARROW DEPRESSION [None]
  - CHRONIC OBSTRUCTIVE AIRWAYS DISEASE EXACERBATED [None]
  - CONSTIPATION [None]
  - GASTROINTESTINAL DISORDER [None]
  - HAEMATURIA [None]
  - HEADACHE [None]
  - HYPONATRAEMIA [None]
  - INJECTION SITE PHLEBITIS [None]
  - LYMPHADENOPATHY [None]
  - MENTAL STATUS CHANGES [None]
  - PANCYTOPENIA [None]
  - PULMONARY EMBOLISM [None]
  - RESPIRATORY DISTRESS [None]
  - SEPSIS [None]
  - TACHYCARDIA [None]
